FAERS Safety Report 10238466 (Version 1)
Quarter: 2014Q2

REPORT INFORMATION
  Report Type: Spontaneous
  Country: US (occurrence: US)
  Receive Date: 20140616
  Receipt Date: 20140616
  Transmission Date: 20141212
  Serious: Yes (Death)
  Sender: FDA-Public Use
  Company Number: US-INCYTE CORPORATION-2014IN001664

PATIENT
  Age: 61 Year
  Sex: Female
  Weight: 59 kg

DRUGS (1)
  1. JAKAFI [Suspect]
     Indication: MYELOFIBROSIS
     Dosage: 20 MG, 1TQD/2TQD
     Route: 048
     Dates: start: 20131011

REACTIONS (1)
  - Death [Fatal]
